FAERS Safety Report 15970298 (Version 1)
Quarter: 2019Q1

REPORT INFORMATION
  Report Type: Spontaneous
  Country: GB (occurrence: GB)
  Receive Date: 20190215
  Receipt Date: 20190215
  Transmission Date: 20190418
  Serious: Yes (Life-Threatening, Hospitalization, Other)
  Sender: FDA-Public Use
  Company Number: GB-GILEAD-2019-0390440

PATIENT
  Age: 50 Year
  Sex: Male
  Weight: 63 kg

DRUGS (2)
  1. MELATONIN [Concomitant]
     Active Substance: MELATONIN
  2. TRUVADA [Suspect]
     Active Substance: EMTRICITABINE\TENOFOVIR DISOPROXIL FUMARATE
     Indication: POST VIRAL FATIGUE SYNDROME
     Dosage: UNK
     Route: 048
     Dates: start: 20180912, end: 20180921

REACTIONS (6)
  - Cough [Unknown]
  - Condition aggravated [Recovering/Resolving]
  - Influenza like illness [Unknown]
  - Haemoptysis [Unknown]
  - Granulomatosis with polyangiitis [Recovering/Resolving]
  - Nausea [Recovered/Resolved]

NARRATIVE: CASE EVENT DATE: 20180912
